FAERS Safety Report 25952679 (Version 1)
Quarter: 2025Q4

REPORT INFORMATION
  Report Type: Spontaneous
  Country: US (occurrence: US)
  Receive Date: 20251023
  Receipt Date: 20251023
  Transmission Date: 20260118
  Serious: No
  Sender: DAIICHI
  Company Number: US-DAIICHI SANKYO, INC.-DS-2025-169904-USAA

PATIENT
  Sex: Male

DRUGS (2)
  1. DATROWAY [Suspect]
     Active Substance: DATOPOTAMAB DERUXTECAN-DLNK
     Indication: Non-small cell lung cancer
     Dosage: UNK
     Route: 065
     Dates: start: 2025
  2. DATROWAY [Suspect]
     Active Substance: DATOPOTAMAB DERUXTECAN-DLNK
     Dosage: UNK 3RD INFUSION
     Route: 065
     Dates: start: 20251010

REACTIONS (3)
  - Infusion related reaction [Recovered/Resolved]
  - Pharyngeal paraesthesia [Recovered/Resolved]
  - Cough [Recovered/Resolved]

NARRATIVE: CASE EVENT DATE: 20251010
